FAERS Safety Report 8389992-6 (Version None)
Quarter: 2012Q2

REPORT INFORMATION
  Report Type: 
  Country: None (occurrence: None)
  Receive Date: 20120521
  Receipt Date: 20120509
  Transmission Date: 20120825
  Serious: Yes (Other)
  Sender: FDA-Public Use
  Company Number: US-1192187

PATIENT
  Age: 70 Year
  Sex: Male

DRUGS (14)
  1. NOVOLIN N [Concomitant]
  2. NITROGLYCERIN [Concomitant]
  3. ASPIRIN [Concomitant]
  4. REFRESIH [Concomitant]
  5. ATORVASTATIN CALCIUM [Concomitant]
  6. HUMULIN N [Concomitant]
  7. METOPROLOL TARTRATE [Concomitant]
  8. AMLODIPINE BESYLATE [Concomitant]
  9. SIMVASTATIN [Concomitant]
  10. ERYTHROMYCIN [Concomitant]
  11. VITAMIN B-12 [Concomitant]
  12. NEVANAC [Suspect]
     Dosage: (1 GTT TID OS OPHTHALMIC) ; (OPHTHALMIC)
     Route: 047
     Dates: start: 20111210, end: 20120120
  13. NEVANAC [Suspect]
     Dosage: (1 GTT TID OS OPHTHALMIC) ; (OPHTHALMIC)
     Route: 047
     Dates: start: 20111013, end: 20120120
  14. ENALAPRIL MALEATE [Concomitant]

REACTIONS (1)
  - ULCERATIVE KERATITIS [None]
